FAERS Safety Report 4965396-0 (Version None)
Quarter: 2006Q2

REPORT INFORMATION
  Report Type: 
  Country: None (occurrence: None)
  Receive Date: 20060406
  Receipt Date: 20060328
  Transmission Date: 20061013
  Serious: Yes (Hospitalization)
  Sender: FDA-Public Use
  Company Number: JP-MERCK-0603USA04692

PATIENT
  Age: 61 Year
  Sex: Male

DRUGS (7)
  1. COZAAR [Suspect]
     Indication: HYPERTENSION
     Route: 048
     Dates: start: 20060215, end: 20060324
  2. LAFUTIDINE [Suspect]
     Route: 048
     Dates: start: 20060223, end: 20060324
  3. PANALDINE [Suspect]
     Route: 048
     Dates: start: 20060215, end: 20060313
  4. ASPIRIN [Concomitant]
     Route: 048
  5. ADALAT [Concomitant]
     Route: 048
     Dates: end: 20060324
  6. SIGMART [Concomitant]
     Route: 048
     Dates: start: 20060215, end: 20060301
  7. PLETAL [Concomitant]
     Route: 048
     Dates: start: 20060314

REACTIONS (3)
  - ANOREXIA [None]
  - JAUNDICE [None]
  - PRURITUS GENERALISED [None]
